FAERS Safety Report 8506575-5 (Version None)
Quarter: 2012Q2

REPORT INFORMATION
  Report Type: 
  Country: None (occurrence: None)
  Receive Date: 20120405
  Receipt Date: 20090316
  Transmission Date: 20120825
  Serious: Yes (Other)
  Sender: FDA-Public Use
  Company Number: PHEH2009US01998

PATIENT
  Age: 80 Year
  Sex: Female
  Weight: 55.3 kg

DRUGS (13)
  1. VITAMIN D [Concomitant]
  2. ASPARTATE CALCIUM (ASPARTATE CALCIUM) [Concomitant]
  3. ALLBEE WITH C (ASCORBIC ACID, CALCIUM PANTOTHENATE, NICOTINAMIDE, PYRI [Concomitant]
  4. XANAX [Concomitant]
  5. CITRACAL + D (CALCIUM CITRATE, ERGOCALCIFEROL) [Suspect]
     Dosage: ONE FOUR TIMES DAILY, ORAL
     Route: 048
  6. ZYRTEC [Concomitant]
  7. LIPITOR [Concomitant]
  8. CITRUCEL (METHYLCELLULOSE) [Concomitant]
  9. RECLAST [Suspect]
     Indication: OSTEOPOROSIS
     Dosage: 5 MG YEARLY, INFUSION
     Dates: start: 20080124
  10. LOTREL [Concomitant]
  11. MULTIVITAMIN ^LAPPE^ (VITAMINS NOS) [Concomitant]
  12. ACIPHEX [Concomitant]
  13. LISINOPRIL [Concomitant]

REACTIONS (5)
  - INTERVERTEBRAL DISC DEGENERATION [None]
  - ARTHRITIS [None]
  - PAIN [None]
  - CALCINOSIS [None]
  - GASTROINTESTINAL DISORDER [None]
